FAERS Safety Report 17826611 (Version 5)
Quarter: 2020Q3

REPORT INFORMATION
  Report Type: Spontaneous
  Country: US (occurrence: US)
  Receive Date: 20200526
  Receipt Date: 20200817
  Transmission Date: 20201102
  Serious: Yes (Hospitalization)
  Sender: FDA-Public Use
  Company Number: US-ACTELION-A-US2020-205310

PATIENT
  Age: 11 Month
  Sex: Female

DRUGS (8)
  1. TRACLEER [Suspect]
     Active Substance: BOSENTAN
     Indication: PULMONARY ARTERIAL HYPERTENSION
     Dosage: 12 MG, BID
     Route: 048
     Dates: start: 202002
  2. UPTRAVI [Suspect]
     Active Substance: SELEXIPAG
     Dosage: 400 MCG, BID
     Route: 048
     Dates: start: 20200602
  3. DIURIL [CHLOROTHIAZIDE SODIUM] [Concomitant]
     Dosage: 33 MG, TID
     Route: 048
     Dates: start: 202004
  4. LASIX [Concomitant]
     Active Substance: FUROSEMIDE
     Dosage: 6 MG, BID
     Route: 048
     Dates: start: 202002
  5. SILDENAFIL. [Concomitant]
     Active Substance: SILDENAFIL
     Dosage: 6 MG, TID
     Route: 048
     Dates: start: 202002
  6. UPTRAVI [Suspect]
     Active Substance: SELEXIPAG
     Indication: PULMONARY ARTERIAL HYPERTENSION
     Dosage: 200 UNK, BID
     Route: 048
     Dates: start: 202004
  7. PEPCID AC [Concomitant]
     Active Substance: FAMOTIDINE
     Dosage: 6 MG, BID
     Route: 048
     Dates: start: 202004
  8. DIGOXIN. [Concomitant]
     Active Substance: DIGOXIN
     Dosage: 40.5 MCG, QD
     Route: 048
     Dates: start: 202004

REACTIONS (8)
  - Pulmonary hypertension [Recovered/Resolved]
  - Rhinovirus infection [Recovered/Resolved]
  - Acute respiratory failure [Recovered/Resolved]
  - Pyrexia [Unknown]
  - Pneumonia viral [Recovered/Resolved]
  - Oxygen consumption increased [Not Recovered/Not Resolved]
  - Respiratory distress [Not Recovered/Not Resolved]
  - Unevaluable event [Recovered/Resolved]

NARRATIVE: CASE EVENT DATE: 20200327
